FAERS Safety Report 12742718 (Version 2)
Quarter: 2016Q4

REPORT INFORMATION
  Report Type: Spontaneous
  Country: US (occurrence: US)
  Receive Date: 20160914
  Receipt Date: 20161202
  Transmission Date: 20170207
  Serious: Yes (Hospitalization, Other)
  Sender: FDA-Public Use
  Company Number: US-JNJFOC-20160907995

PATIENT
  Age: 82 Year
  Sex: Male
  Weight: 79.38 kg

DRUGS (1)
  1. XARELTO [Suspect]
     Active Substance: RIVAROXABAN
     Indication: THROMBOSIS
     Route: 048
     Dates: start: 201511

REACTIONS (6)
  - Muscular weakness [Recovering/Resolving]
  - Seasonal allergy [Not Recovered/Not Resolved]
  - Thrombosis [Unknown]
  - Urinary bladder haemorrhage [Recovering/Resolving]
  - Product packaging issue [Unknown]
  - Bladder injury [Unknown]

NARRATIVE: CASE EVENT DATE: 201511
